FAERS Safety Report 11987029 (Version 1)
Quarter: 2016Q1

REPORT INFORMATION
  Report Type: Report from Study
  Country: US (occurrence: US)
  Receive Date: 20160202
  Receipt Date: 20160202
  Transmission Date: 20160526
  Serious: No
  Sender: FDA-Public Use
  Company Number: US-ABBVIE-15K-163-1342507-00

PATIENT
  Age: 33 Year
  Sex: Female
  Weight: 66.28 kg

DRUGS (1)
  1. HUMIRA [Suspect]
     Active Substance: ADALIMUMAB
     Indication: ANKYLOSING SPONDYLITIS
     Route: 065
     Dates: start: 201312

REACTIONS (4)
  - Incorrect dose administered [Recovered/Resolved]
  - Device issue [Unknown]
  - Injection site haemorrhage [Not Recovered/Not Resolved]
  - Injection site papule [Not Recovered/Not Resolved]

NARRATIVE: CASE EVENT DATE: 20150201
